FAERS Safety Report 5873600-X (Version None)
Quarter: 2008Q3

REPORT INFORMATION
  Report Type: 
  Country: None (occurrence: None)
  Receive Date: 20080904
  Receipt Date: 20080904
  Transmission Date: 20090109
  Serious: Yes (Hospitalization)
  Sender: FDA-Public Use
  Company Number: None

PATIENT
  Age: 70 Year
  Sex: Male

DRUGS (2)
  1. TRIMETHOPRIM + SULFAMETHOXAZOLE [Suspect]
     Indication: MASTOIDITIS
     Dosage: 1 TAB BID PO
     Route: 048
     Dates: start: 20080724, end: 20080729
  2. TRIMETHOPRIM + SULFAMETHOXAZOLE [Suspect]
     Indication: OTITIS MEDIA
     Dosage: 1 TAB BID PO
     Route: 048
     Dates: start: 20080724, end: 20080729

REACTIONS (3)
  - BLOOD CREATININE INCREASED [None]
  - BLOOD UREA INCREASED [None]
  - HYPERKALAEMIA [None]
